FAERS Safety Report 18049750 (Version 1)
Quarter: 2020Q3

REPORT INFORMATION
  Report Type: Spontaneous
  Country: US (occurrence: US)
  Receive Date: 20200721
  Receipt Date: 20200721
  Transmission Date: 20201103
  Serious: Yes (Life-Threatening, Other)
  Sender: FDA-Public Use
  Company Number: None

PATIENT
  Age: 24 Year
  Sex: Female
  Weight: 86.85 kg

DRUGS (1)
  1. PROCHLORPERAZINE. [Suspect]
     Active Substance: PROCHLORPERAZINE
     Indication: HEADACHE
     Dosage: ?          QUANTITY:1 TABLET(S);?
     Route: 048
     Dates: start: 20200716, end: 20200717

REACTIONS (7)
  - Dyskinesia [None]
  - Dysarthria [None]
  - Tremor [None]
  - Protrusion tongue [None]
  - Throat tightness [None]
  - Anxiety [None]
  - Tongue movement disturbance [None]

NARRATIVE: CASE EVENT DATE: 20200717
